FAERS Safety Report 8549217-5 (Version None)
Quarter: 2012Q3

REPORT INFORMATION
  Report Type: 
  Country: None (occurrence: None)
  Receive Date: 20120730
  Receipt Date: 20120715
  Transmission Date: 20120928
  Serious: Yes (Hospitalization)
  Sender: FDA-Public Use
  Company Number: DK-009507513-1207DNK006111

PATIENT

DRUGS (6)
  1. PREDNISOLONE [Concomitant]
     Dosage: UNK
     Dates: start: 20120417, end: 20120518
  2. VANCOMYCIN [Concomitant]
     Dosage: UNK
     Dates: start: 20120505, end: 20120517
  3. ONCOVIN [Interacting]
     Dosage: 2 MG, QW
     Dates: start: 20120417, end: 20120501
  4. IMATINIB MESYLATE [Concomitant]
     Dosage: UNK
     Dates: start: 20120418
  5. NOXAFIL [Suspect]
     Indication: ANTIFUNGAL PROPHYLAXIS
     Dosage: 200 MG, TID
     Route: 048
     Dates: start: 20120427, end: 20120515
  6. MEROPENEM [Concomitant]
     Dosage: UNK
     Dates: start: 20120505, end: 20120517

REACTIONS (4)
  - NEUROTOXICITY [None]
  - PAIN IN EXTREMITY [None]
  - DRUG INTERACTION [None]
  - HYPOKINESIA [None]
